FAERS Safety Report 10092481 (Version 1)
Quarter: 2014Q2

REPORT INFORMATION
  Report Type: Spontaneous
  Country: US (occurrence: US)
  Receive Date: 20140421
  Receipt Date: 20140421
  Transmission Date: 20141212
  Serious: No
  Sender: FDA-Public Use
  Company Number: US-SANOFI-AVENTIS-2013SA040622

PATIENT
  Age: 70 Year
  Sex: Female

DRUGS (4)
  1. ALLEGRA [Suspect]
     Indication: HYPERSENSITIVITY
     Dosage: FREQUENCY: IN THE EVENING AND THEN IN THE NEXT MORNING (12 HOURLY)
     Route: 048
     Dates: start: 20130401
  2. ALLEGRA [Suspect]
     Indication: NASAL CONGESTION
     Dosage: FREQUENCY: IN THE EVENING AND THEN IN THE NEXT MORNING (12 HOURLY)
     Route: 048
     Dates: start: 20130401
  3. PREDNISONE [Concomitant]
     Indication: NASAL CONGESTION
     Route: 065
  4. ALLEGRA D [Concomitant]
     Route: 065
     Dates: end: 20130401

REACTIONS (2)
  - Somnolence [Unknown]
  - Inappropriate schedule of drug administration [Unknown]
